FAERS Safety Report 5572736-0 (Version None)
Quarter: 2007Q4

REPORT INFORMATION
  Report Type: 
  Country: None (occurrence: None)
  Receive Date: 20071130
  Receipt Date: 20070104
  Transmission Date: 20080405
  Serious: Yes (Disabling, Other)
  Sender: FDA-Public Use
  Company Number: WAES 0606USA00399

PATIENT
  Age: 73 Year
  Sex: Female
  Weight: 61.2356 kg

DRUGS (7)
  1. FOSAMAX [Suspect]
     Indication: OSTEOPOROSIS
     Dosage: PO
     Route: 048
     Dates: start: 19970101
  2. DIGITEK [Concomitant]
  3. LASIX [Concomitant]
  4. DILTIAZEM HYDROCHLORIDE [Concomitant]
  5. DILTIAZEM HYDROCHLORIDE [Concomitant]
  6. FOLIC ACID [Concomitant]
  7. METOPROLOL TARTRATE [Concomitant]

REACTIONS (1)
  - OSTEONECROSIS [None]
